FAERS Safety Report 6208965-2 (Version None)
Quarter: 2009Q2

REPORT INFORMATION
  Report Type: 
  Country: None (occurrence: None)
  Receive Date: 20090529
  Receipt Date: 20090511
  Transmission Date: 20091009
  Serious: Yes (Other)
  Sender: FDA-Public Use
  Company Number: BR-PFIZER INC-2009187654

PATIENT
  Age: 30 Year

DRUGS (2)
  1. DEPO-PROVERA [Suspect]
     Indication: CONTRACEPTION
     Dosage: 150 MG, EVERY 3 MONTHS
     Dates: start: 20080101, end: 20090101
  2. DEPO-PROVERA [Suspect]
     Indication: MENSTRUAL DISCOMFORT

REACTIONS (4)
  - ASTHENIA [None]
  - DIZZINESS [None]
  - MALAISE [None]
  - UTERINE HAEMORRHAGE [None]
